FAERS Safety Report 8412401-5 (Version None)
Quarter: 2012Q2

REPORT INFORMATION
  Report Type: 
  Country: None (occurrence: None)
  Receive Date: 20120605
  Receipt Date: 20120523
  Transmission Date: 20120825
  Serious: Yes (Disabling)
  Sender: FDA-Public Use
  Company Number: FR-ELI_LILLY_AND_COMPANY-FR201205007890

PATIENT
  Sex: Male

DRUGS (4)
  1. ZYPREXA [Suspect]
     Dosage: 350 MG, QD
     Route: 048
     Dates: start: 20120401
  2. LITHIUM CARBONATE [Concomitant]
     Indication: MENTAL DISORDER
     Dosage: 400 MG, UNK
     Dates: start: 20100101
  3. ZYPREXA [Suspect]
     Indication: MENTAL DISORDER
     Dosage: 10 MG, QD
     Route: 048
     Dates: start: 20100101
  4. BACLOFEN [Concomitant]
     Indication: ALCOHOLISM
     Dosage: UNK
     Dates: start: 20110101

REACTIONS (2)
  - INSOMNIA [None]
  - INTENTIONAL OVERDOSE [None]
